FAERS Safety Report 6595857-2 (Version None)
Quarter: 2010Q1

REPORT INFORMATION
  Report Type: 
  Country: None (occurrence: None)
  Receive Date: 20100219
  Receipt Date: 20100219
  Transmission Date: 20100710
  Serious: No
  Sender: FDA-Public Use
  Company Number: None

PATIENT
  Sex: Female
  Weight: 71.6683 kg

DRUGS (2)
  1. WELCHOL [Suspect]
     Indication: BLOOD CHOLESTEROL INCREASED
     Dosage: 625MG X 6 TAB DAILY BY MOUTH
     Route: 048
     Dates: start: 20090801
  2. WELCHOL [Suspect]
     Indication: BLOOD CHOLESTEROL INCREASED
     Dosage: 625MG X 6 TAB DAILY BY MOUTH
     Route: 048
     Dates: start: 20100201

REACTIONS (2)
  - ABDOMINAL PAIN UPPER [None]
  - BACK PAIN [None]
